FAERS Safety Report 8110931-7 (Version None)
Quarter: 2012Q1

REPORT INFORMATION
  Report Type: 
  Country: None (occurrence: None)
  Receive Date: 20120203
  Receipt Date: 20110214
  Transmission Date: 20120608
  Serious: No
  Sender: FDA-Public Use
  Company Number: US-GLAXOSMITHKLINE-A0859146B

PATIENT
  Weight: 3.6 kg

DRUGS (5)
  1. SERTRALINE HYDROCHLORIDE [Suspect]
     Indication: PRODUCT USED FOR UNKNOWN INDICATION
     Dosage: 100MG PER DAY
     Route: 064
     Dates: start: 20080101
  2. LAMICTAL [Suspect]
     Indication: CONVULSION
     Dosage: 150MG TWICE PER DAY
     Route: 064
     Dates: start: 20070101
  3. NICOTINE [Concomitant]
     Route: 064
  4. VITAMIN AND MINERAL PRENATAL SUPPLEMENT W/ FOLIC ACID CAP [Concomitant]
     Dosage: 1TAB PER DAY
     Route: 064
  5. FOLIC ACID [Concomitant]
     Route: 064

REACTIONS (3)
  - FEELING JITTERY [None]
  - NEONATAL RESPIRATORY DEPRESSION [None]
  - FOETAL EXPOSURE DURING PREGNANCY [None]
